FAERS Safety Report 8853150 (Version 4)
Quarter: 2013Q1

REPORT INFORMATION
  Report Type: Report from Study
  Country: AU (occurrence: AU)
  Receive Date: 20121022
  Receipt Date: 20130201
  Transmission Date: 20140127
  Serious: Yes (Other)
  Sender: FDA-Public Use
  Company Number: AU-ROCHE-1143756

PATIENT
  Age: 58 Year
  Sex: Female

DRUGS (5)
  1. TOCILIZUMAB [Suspect]
     Indication: RHEUMATOID ARTHRITIS
     Route: 042
     Dates: start: 20120928
  2. ARAVA [Concomitant]
     Indication: RHEUMATOID ARTHRITIS
     Route: 048
  3. PREDNISOLONE [Concomitant]
     Indication: SWELLING
     Route: 048
  4. NEXIUM [Concomitant]
     Indication: GASTROOESOPHAGEAL REFLUX DISEASE
     Route: 048
  5. TRAMADOL [Concomitant]
     Indication: PAIN

REACTIONS (12)
  - Hot flush [Recovered/Resolved]
  - Joint swelling [Recovering/Resolving]
  - Local swelling [Recovering/Resolving]
  - Musculoskeletal pain [Unknown]
  - Back pain [Unknown]
  - Hypoaesthesia [Not Recovered/Not Resolved]
  - Hypoaesthesia [Unknown]
  - Laceration [Unknown]
  - Hot flush [Recovered/Resolved]
  - Lip ulceration [Not Recovered/Not Resolved]
  - Abdominal abscess [Unknown]
  - Acne [Recovering/Resolving]
